FAERS Safety Report 6354127-8 (Version None)
Quarter: 2009Q3

REPORT INFORMATION
  Report Type: 
  Country: None (occurrence: None)
  Receive Date: 20090914
  Receipt Date: 20090909
  Transmission Date: 20100115
  Serious: Yes (Other)
  Sender: FDA-Public Use
  Company Number: US-BAYER-200926514NA

PATIENT
  Age: 28 Year
  Sex: Female

DRUGS (1)
  1. MIRENA [Suspect]
     Indication: CONTRACEPTION
     Dosage: CONTINUOUS
     Route: 015
     Dates: start: 20070101, end: 20090618

REACTIONS (5)
  - IUCD COMPLICATION [None]
  - IUD MIGRATION [None]
  - PELVIC PAIN [None]
  - UTERINE RUPTURE [None]
  - VAGINAL HAEMORRHAGE [None]
